FAERS Safety Report 6839343-0 (Version None)
Quarter: 2010Q3

REPORT INFORMATION
  Report Type: 
  Country: None (occurrence: None)
  Receive Date: 20100714
  Receipt Date: 20100704
  Transmission Date: 20110219
  Serious: Yes (Other)
  Sender: FDA-Public Use
  Company Number: PHHY2010US41212

PATIENT
  Sex: Female

DRUGS (10)
  1. EXTAVIA [Suspect]
     Indication: MULTIPLE SCLEROSIS
     Dosage: 0.062 MG, QOD
     Route: 058
  2. EXTAVIA [Suspect]
     Dosage: 0.125 MG, QOD
     Route: 058
     Dates: start: 20100518
  3. EXTAVIA [Suspect]
     Dosage: 0.062 MG, QOD
     Route: 058
  4. IBUPROFEN [Concomitant]
     Dosage: 800 MG, BID
  5. FLEXERIL [Concomitant]
     Dosage: 10 MG, BID
  6. FLEXERIL [Concomitant]
     Dosage: 10 MG, QD
  7. KLONOPIN [Concomitant]
     Dosage: 0.5 MG, QHS
  8. KLONOPIN [Concomitant]
     Dosage: HALF TABLET AT HOURS OF SLEEP
  9. ADVAIR DISKUS 100/50 [Concomitant]
     Dosage: 250/50
  10. ALBUTEROL [Concomitant]

REACTIONS (7)
  - ASTHMA [None]
  - DRUG EFFECT INCREASED [None]
  - DRUG HYPERSENSITIVITY [None]
  - INFLUENZA LIKE ILLNESS [None]
  - PAIN [None]
  - PULMONARY CONGESTION [None]
  - PYREXIA [None]
